FAERS Safety Report 7977752-7 (Version None)
Quarter: 2011Q4

REPORT INFORMATION
  Report Type: 
  Country: None (occurrence: None)
  Receive Date: 20111214
  Receipt Date: 20111128
  Transmission Date: 20120403
  Serious: Yes (Hospitalization)
  Sender: FDA-Public Use
  Company Number: US-AMGEN-USASP2011062831

PATIENT
  Age: 56 Year
  Sex: Female

DRUGS (1)
  1. ENBREL [Suspect]
     Indication: RHEUMATOID ARTHRITIS
     Dosage: 50 MG, QWK
     Dates: start: 20110907

REACTIONS (10)
  - NAUSEA [None]
  - DEHYDRATION [None]
  - CELLULITIS [None]
  - INJECTION SITE ERYTHEMA [None]
  - INJECTION SITE WARMTH [None]
  - BACTERIAL INFECTION [None]
  - VOMITING [None]
  - PYREXIA [None]
  - INJECTION SITE INDURATION [None]
  - VIRAL INFECTION [None]
